FAERS Safety Report 5624669-9 (Version None)
Quarter: 2008Q1

REPORT INFORMATION
  Report Type: 
  Country: None (occurrence: None)
  Receive Date: 20080213
  Receipt Date: 20080130
  Transmission Date: 20080703
  Serious: Yes (Hospitalization, Congenital Anomaly)
  Sender: FDA-Public Use
  Company Number: A0681916A

PATIENT
  Sex: Male
  Weight: 1.9 kg

DRUGS (3)
  1. PAXIL [Suspect]
     Indication: DEPRESSION
     Dosage: 20MG PER DAY
     Dates: start: 20000201, end: 20030801
  2. PRENATAL VITAMINS [Concomitant]
  3. ANTIBIOTICS [Concomitant]

REACTIONS (31)
  - AORTIC VALVE INCOMPETENCE [None]
  - ATRIAL HYPERTROPHY [None]
  - ATRIAL SEPTAL DEFECT [None]
  - BUNDLE BRANCH BLOCK RIGHT [None]
  - CARDIAC MURMUR [None]
  - CARDIOMEGALY [None]
  - CYANOSIS [None]
  - DEVELOPMENTAL DELAY [None]
  - DRUG EXPOSURE DURING PREGNANCY [None]
  - DYSMORPHISM [None]
  - FALLOT'S TETRALOGY [None]
  - HAEMODYNAMIC INSTABILITY [None]
  - MITRAL VALVE INCOMPETENCE [None]
  - NEONATAL TACHYPNOEA [None]
  - OXYGEN SATURATION DECREASED [None]
  - PLAGIOCEPHALY [None]
  - PLEURAL EFFUSION [None]
  - PREMATURE BABY [None]
  - PULMONARY HYPOPLASIA [None]
  - PULMONARY OEDEMA [None]
  - PULMONARY VALVE INCOMPETENCE [None]
  - PULMONARY VALVE STENOSIS [None]
  - RESPIRATORY DISTRESS [None]
  - SINUS TACHYCARDIA [None]
  - SMALL FOR DATES BABY [None]
  - STRABISMUS [None]
  - SUPRAVENTRICULAR TACHYCARDIA [None]
  - TOOTH DISORDER [None]
  - TRICUSPID VALVE INCOMPETENCE [None]
  - VENTRICULAR SEPTAL DEFECT [None]
  - WEIGHT GAIN POOR [None]
